FAERS Safety Report 11415973 (Version 1)
Quarter: 2015Q3

REPORT INFORMATION
  Report Type: Spontaneous
  Country: US (occurrence: None)
  Receive Date: 20150824
  Receipt Date: 20150824
  Transmission Date: 20151125
  Serious: No
  Sender: FDA-Public Use
  Company Number: None

PATIENT
  Age: 60 Year
  Sex: Female
  Weight: 54.43 kg

DRUGS (2)
  1. SERTRALINE [Concomitant]
     Active Substance: SERTRALINE HYDROCHLORIDE
  2. RESTASIS [Suspect]
     Active Substance: CYCLOSPORINE
     Indication: DRY EYE
     Dosage: 1 DROP
     Route: 047
     Dates: start: 20150331, end: 20150804

REACTIONS (4)
  - Instillation site pruritus [None]
  - Visual impairment [None]
  - Instillation site erythema [None]
  - Vision blurred [None]

NARRATIVE: CASE EVENT DATE: 20150821
